FAERS Safety Report 9984427 (Version 1)
Quarter: 2014Q1

REPORT INFORMATION
  Report Type: Report from Study
  Country: US (occurrence: US)
  Receive Date: 20140307
  Receipt Date: 20140307
  Transmission Date: 20141002
  Serious: No
  Sender: FDA-Public Use
  Company Number: US-ABBVIE-13P-163-1182503-00

PATIENT
  Age: 40 Year
  Sex: Male
  Weight: 115.77 kg

DRUGS (4)
  1. HUMIRA [Suspect]
     Indication: CROHN^S DISEASE
     Dates: start: 201309, end: 201309
  2. HUMIRA [Suspect]
     Dates: start: 201309, end: 201309
  3. HUMIRA [Suspect]
     Dates: start: 201309
  4. LOSARTAN [Concomitant]
     Indication: HYPERTENSION

REACTIONS (1)
  - Rash [Not Recovered/Not Resolved]
